FAERS Safety Report 21619256 (Version 1)
Quarter: 2022Q4

REPORT INFORMATION
  Report Type: Report from Study
  Country: US (occurrence: US)
  Receive Date: 20221120
  Receipt Date: 20221120
  Transmission Date: 20230112
  Serious: No
  Sender: FDA-Public Use
  Company Number: US-ABBVIE-4192049

PATIENT
  Sex: Male
  Weight: 99.79 kg

DRUGS (3)
  1. HUMIRA [Suspect]
     Active Substance: ADALIMUMAB
     Indication: Psoriasis
     Dosage: START DATE-OVER 10 YEARS?STRENGTH 40 MG
     Route: 058
  2. CILOSTAZOL [Concomitant]
     Active Substance: CILOSTAZOL
     Indication: Thrombosis
  3. LISINOPRIL [Concomitant]
     Active Substance: LISINOPRIL
     Indication: Blood pressure management

REACTIONS (2)
  - Psoriasis [Recovered/Resolved]
  - Rheumatoid arthritis [Recovered/Resolved]

NARRATIVE: CASE EVENT DATE: 20220101
